FAERS Safety Report 5528096-4 (Version None)
Quarter: 2007Q4

REPORT INFORMATION
  Report Type: 
  Country: None (occurrence: None)
  Receive Date: 20071128
  Receipt Date: 20071121
  Transmission Date: 20080405
  Serious: Yes (Hospitalization, Other)
  Sender: FDA-Public Use
  Company Number: CA-ASTRAZENECA-2007UW26871

PATIENT
  Age: 77 Year
  Sex: Male

DRUGS (4)
  1. ARIMIDEX [Suspect]
     Indication: BREAST CANCER MALE
     Route: 048
     Dates: start: 20070101, end: 20070601
  2. FLU SHOT [Concomitant]
     Dates: start: 20071107, end: 20071107
  3. TAMOXIFEN CITRATE [Concomitant]
     Indication: BREAST CANCER MALE
     Dates: start: 20070701
  4. ASPIRIN [Concomitant]
     Indication: THROMBOSIS PROPHYLAXIS
     Dates: start: 20070701

REACTIONS (9)
  - CHILLS [None]
  - HYPOAESTHESIA [None]
  - INCISION SITE INFECTION [None]
  - MYALGIA [None]
  - OEDEMA PERIPHERAL [None]
  - PARAESTHESIA [None]
  - PRURITUS [None]
  - SKIN DISORDER [None]
  - VISUAL DISTURBANCE [None]
